FAERS Safety Report 6938708-6 (Version None)
Quarter: 2010Q3

REPORT INFORMATION
  Report Type: 
  Country: None (occurrence: None)
  Receive Date: 20100824
  Receipt Date: 20100812
  Transmission Date: 20110219
  Serious: Yes (Other)
  Sender: FDA-Public Use
  Company Number: PHHY2010CA53613

PATIENT

DRUGS (5)
  1. ALISKIREN ALI+ [Suspect]
     Dosage: DAILY
  2. DIURETICS [Concomitant]
  3. ARB [Concomitant]
  4. BETA BLOCKING AGENTS [Concomitant]
  5. ALPHA BLOCKER [Concomitant]

REACTIONS (2)
  - HYPERTENSION [None]
  - RENAL FAILURE [None]
